FAERS Safety Report 16999275 (Version 2)
Quarter: 2020Q1

REPORT INFORMATION
  Report Type: Spontaneous
  Country: US (occurrence: US)
  Receive Date: 20191105
  Receipt Date: 20200206
  Transmission Date: 20200409
  Serious: No
  Sender: FDA-Public Use
  Company Number: US-RADIUS HEALTH INC.-2019US003352

PATIENT
  Sex: Female

DRUGS (1)
  1. TYMLOS [Suspect]
     Active Substance: ABALOPARATIDE
     Indication: OSTEOPOROSIS POSTMENOPAUSAL
     Dosage: 80 MCG, QD
     Route: 058
     Dates: start: 20190810, end: 20190908

REACTIONS (5)
  - Decreased activity [Recovering/Resolving]
  - Malaise [Recovered/Resolved]
  - Palpitations [Recovering/Resolving]
  - Nausea [Recovering/Resolving]
  - Dizziness [Recovering/Resolving]
